FAERS Safety Report 7456584-2 (Version None)
Quarter: 2011Q2

REPORT INFORMATION
  Report Type: 
  Country: None (occurrence: None)
  Receive Date: 20110503
  Receipt Date: 20110426
  Transmission Date: 20111010
  Serious: Yes (Other)
  Sender: FDA-Public Use
  Company Number: US-PFIZER INC-2011028550

PATIENT
  Sex: Female
  Weight: 75 kg

DRUGS (2)
  1. PREMARIN [Suspect]
     Indication: HORMONE REPLACEMENT THERAPY
     Dosage: 0.9 MG, DAILY
     Route: 048
     Dates: start: 19800101
  2. PREMARIN [Suspect]
     Dosage: 0.9 MG, 1X/DAY
     Route: 048

REACTIONS (6)
  - DEPRESSION [None]
  - FEELING ABNORMAL [None]
  - WEIGHT INCREASED [None]
  - DRUG INEFFECTIVE [None]
  - THYROID DISORDER [None]
  - INSOMNIA [None]
